FAERS Safety Report 25304633 (Version 1)
Quarter: 2025Q2

REPORT INFORMATION
  Report Type: Spontaneous
  Country: US (occurrence: US)
  Receive Date: 20250513
  Receipt Date: 20250513
  Transmission Date: 20250717
  Serious: Yes (Hospitalization)
  Sender: BAYER HEALTHCARE PHARMACEUTICALS INC.
  Company Number: US-BAYER-2025A062414

PATIENT
  Age: 31 Year
  Sex: Female

DRUGS (3)
  1. MIRENA [Suspect]
     Active Substance: LEVONORGESTREL
     Indication: Contraception
     Dosage: 20?G/DAY
     Route: 015
     Dates: start: 202002
  2. LUMRYZ [Concomitant]
     Active Substance: SODIUM OXYBATE
  3. LUMRYZ [Concomitant]
     Active Substance: SODIUM OXYBATE

REACTIONS (5)
  - Psychotic symptom [None]
  - Panic reaction [None]
  - Anxiety [None]
  - Confusional state [None]
  - Memory impairment [None]

NARRATIVE: CASE EVENT DATE: 20250430
